FAERS Safety Report 7296644-2 (Version None)
Quarter: 2011Q1

REPORT INFORMATION
  Report Type: 
  Country: None (occurrence: None)
  Receive Date: 20110216
  Receipt Date: 20110211
  Transmission Date: 20110831
  Serious: Yes (Life-Threatening, Hospitalization, Other)
  Sender: FDA-Public Use
  Company Number: PHHO2011US02877

PATIENT
  Sex: Male

DRUGS (1)
  1. AFINITOR [Suspect]
     Indication: COLORECTAL CANCER METASTATIC
     Dosage: 5 MG, QD
     Route: 048
     Dates: start: 20101223

REACTIONS (6)
  - ABDOMINAL PAIN UPPER [None]
  - NON-CARDIAC CHEST PAIN [None]
  - ASCITES [None]
  - SURGERY [None]
  - DUODENAL ULCER PERFORATION [None]
  - ABDOMINAL PAIN [None]
